FAERS Safety Report 18986790 (Version 1)
Quarter: 2021Q1

REPORT INFORMATION
  Report Type: Spontaneous
  Country: FR (occurrence: FR)
  Receive Date: 20210309
  Receipt Date: 20210309
  Transmission Date: 20210420
  Serious: Yes (Other)
  Sender: FDA-Public Use
  Company Number: FR-PFIZER INC-2021213756

PATIENT
  Age: 56 Year
  Sex: Female

DRUGS (1)
  1. PACLITAXEL. [Suspect]
     Active Substance: PACLITAXEL
     Indication: LUNG ADENOCARCINOMA
     Dosage: UNK UNK, CYCLIC (11 WEEK)
     Dates: start: 201408, end: 201411

REACTIONS (4)
  - Pyrexia [Unknown]
  - Lung infiltration [Unknown]
  - Cough [Unknown]
  - Hypoxia [Unknown]
